FAERS Safety Report 5786992-7 (Version None)
Quarter: 2008Q2

REPORT INFORMATION
  Report Type: 
  Country: None (occurrence: None)
  Receive Date: 20080625
  Receipt Date: 20080617
  Transmission Date: 20081010
  Serious: Yes (Other)
  Sender: FDA-Public Use
  Company Number: JP-JNJFOC-20061105906

PATIENT
  Age: 6 Decade
  Sex: Male

DRUGS (15)
  1. RISPERDAL [Suspect]
     Route: 048
  2. RISPERDAL [Suspect]
     Indication: DRUG USE FOR UNKNOWN INDICATION
     Route: 048
  3. RISPERDAL [Suspect]
     Route: 048
  4. LENDORMIN [Concomitant]
     Indication: DRUG USE FOR UNKNOWN INDICATION
     Route: 048
  5. DEPAS [Concomitant]
     Indication: DRUG USE FOR UNKNOWN INDICATION
     Route: 048
  6. ROHYPNOL [Concomitant]
     Indication: DRUG USE FOR UNKNOWN INDICATION
     Route: 048
  7. DIAZEPAM [Concomitant]
     Indication: DRUG USE FOR UNKNOWN INDICATION
     Route: 048
  8. AKINETON [Concomitant]
  9. VEGETAMIN-A [Concomitant]
  10. GOODMIN [Concomitant]
  11. SENNOSIDE [Concomitant]
     Route: 065
  12. LOPERAMIDE HCL [Concomitant]
     Route: 048
  13. SAIREI-TO [Concomitant]
  14. DOMPERIDONE [Concomitant]
  15. CLOXAZOLAM [Concomitant]
     Route: 048

REACTIONS (15)
  - BLOOD GLUCOSE INCREASED [None]
  - CONSTIPATION [None]
  - DIARRHOEA [None]
  - DIZZINESS [None]
  - DYSPEPSIA [None]
  - GAIT DISTURBANCE [None]
  - HUNGER [None]
  - HYPOKINESIA [None]
  - INSOMNIA [None]
  - NAUSEA [None]
  - SOMNOLENCE [None]
  - SUICIDAL IDEATION [None]
  - THIRST [None]
  - TREMOR [None]
  - VOMITING [None]
